FAERS Safety Report 6548347-7 (Version None)
Quarter: 2010Q1

REPORT INFORMATION
  Report Type: 
  Country: None (occurrence: None)
  Receive Date: 20100124
  Receipt Date: 20090521
  Transmission Date: 20100710
  Serious: No
  Sender: FDA-Public Use
  Company Number: US-ALLERGAN-0907146US

PATIENT
  Sex: Male

DRUGS (3)
  1. RESTASIS [Suspect]
     Indication: DRY EYE
     Dosage: UNK, UNKNOWN
     Route: 047
     Dates: start: 20090201
  2. OPTIVE [Suspect]
     Indication: DRY EYE
     Dosage: UNK, UNKNOWN
     Route: 047
     Dates: start: 20090201
  3. COUMADIN [Concomitant]

REACTIONS (2)
  - EYE IRRITATION [None]
  - LACRIMATION INCREASED [None]
